FAERS Safety Report 8337702 (Version 2)
Quarter: 2013Q3

REPORT INFORMATION
  Report Type: Spontaneous
  Country: CN (occurrence: CN)
  Receive Date: 20120116
  Receipt Date: 20130916
  Transmission Date: 20140515
  Serious: Yes (Other)
  Sender: FDA-Public Use
  Company Number: CN-JNJFOC-20120104193

PATIENT
  Sex: 0

DRUGS (6)
  1. TOPIRAMATE [Suspect]
     Indication: INFANTILE SPASMS
     Route: 048
  2. ACTH [Suspect]
     Indication: INFANTILE SPASMS
     Route: 042
  3. ACTH [Suspect]
     Indication: INFANTILE SPASMS
     Route: 042
  4. IVIG [Suspect]
     Indication: INFANTILE SPASMS
     Route: 042
  5. VITAMIN B6 [Suspect]
     Indication: INFANTILE SPASMS
     Route: 042
  6. PREDNISONE [Suspect]
     Indication: INFANTILE SPASMS
     Route: 048

REACTIONS (2)
  - Infantile spasms [Unknown]
  - Refusal of treatment by patient [Unknown]
